FAERS Safety Report 6930069-1 (Version None)
Quarter: 2010Q3

REPORT INFORMATION
  Report Type: 
  Country: None (occurrence: None)
  Receive Date: 20100818
  Receipt Date: 20100811
  Transmission Date: 20110219
  Serious: Yes (Other)
  Sender: FDA-Public Use
  Company Number: US-BAYER-201030400NA

PATIENT
  Age: 23 Year
  Sex: Female

DRUGS (1)
  1. AVELOX [Suspect]
     Indication: PHARYNGITIS STREPTOCOCCAL
     Route: 048

REACTIONS (4)
  - ERYTHEMA [None]
  - FORMICATION [None]
  - HYPERSENSITIVITY [None]
  - PRURITUS GENERALISED [None]
